FAERS Safety Report 9342352 (Version 2)
Quarter: 2013Q3

REPORT INFORMATION
  Report Type: Spontaneous
  Country: AU (occurrence: AU)
  Receive Date: 20130611
  Receipt Date: 20130710
  Transmission Date: 20140515
  Serious: Yes (Life-Threatening, Hospitalization, Other)
  Sender: FDA-Public Use
  Company Number: AU-B.I. PHARMACEUTICALS,INC./RIDGEFIELD-2013-AU-00709AU

PATIENT
  Age: 80 Year
  Sex: Female
  Weight: 52 kg

DRUGS (10)
  1. PRADAXA [Suspect]
     Indication: ATRIAL FIBRILLATION
     Dosage: 220 MG
     Dates: start: 201006
  2. NORVASC [Concomitant]
  3. ATACAND [Concomitant]
     Indication: BLOOD PRESSURE
  4. DIGOXIN PG [Concomitant]
  5. LASIX [Concomitant]
     Dosage: 20 MG
  6. MACU VISION [Concomitant]
  7. PANADOL OSTEO [Concomitant]
  8. VIT D [+ CALCIUM] [Concomitant]
  9. [VIT D +] CALCIUM [Concomitant]
  10. SOMAC [Concomitant]

REACTIONS (4)
  - Haemorrhagic transformation stroke [Recovered/Resolved with Sequelae]
  - Ischaemic cerebral infarction [Recovered/Resolved with Sequelae]
  - Urethral haemorrhage [Recovered/Resolved]
  - Haematochezia [Recovered/Resolved]
